FAERS Safety Report 5802895-3 (Version None)
Quarter: 2008Q3

REPORT INFORMATION
  Report Type: 
  Country: None (occurrence: None)
  Receive Date: 20080708
  Receipt Date: 20080627
  Transmission Date: 20090109
  Serious: Yes (Other)
  Sender: FDA-Public Use
  Company Number: GB-JNJFOC-20080700131

PATIENT
  Age: 57 Year
  Sex: Female
  Weight: 79 kg

DRUGS (12)
  1. REMICADE [Suspect]
     Indication: RHEUMATOID ARTHRITIS
     Route: 042
  2. METHOTREXATE [Concomitant]
  3. PREDNISOLONE [Concomitant]
  4. ATENOLOL [Concomitant]
  5. CALCIUM [Concomitant]
  6. VITAMIN D [Concomitant]
  7. CO-AMILOZIDE [Concomitant]
  8. ELLESTE DUET [Concomitant]
  9. FLUOXETINE [Concomitant]
  10. FOLIC ACID [Concomitant]
  11. TRAMADOL HCL [Concomitant]
  12. VIOXX [Concomitant]

REACTIONS (1)
  - SKIN CANCER [None]
